FAERS Safety Report 4925680-3 (Version None)
Quarter: 2006Q1

REPORT INFORMATION
  Report Type: 
  Country: None (occurrence: None)
  Receive Date: 20060228
  Receipt Date: 20050121
  Transmission Date: 20060701
  Serious: No
  Sender: FDA-Public Use
  Company Number: US-GLAXOSMITHKLINE-A0541744A

PATIENT
  Age: 38 Year
  Sex: Male
  Weight: 62.3 kg

DRUGS (5)
  1. LAMICTAL [Suspect]
     Dosage: 175MG VARIABLE DOSE
     Route: 048
     Dates: start: 20041123, end: 20050121
  2. TOPAMAX [Concomitant]
     Dosage: 350MG PER DAY
     Route: 048
  3. CLARITIN [Concomitant]
     Dosage: 10MG PER DAY
     Route: 048
  4. NEURONTIN [Concomitant]
     Dosage: 1200MG THREE TIMES PER DAY
     Route: 048
  5. TEGRETOL-XR [Concomitant]
     Route: 048

REACTIONS (1)
  - RASH [None]
